FAERS Safety Report 6163450-1 (Version None)
Quarter: 2009Q2

REPORT INFORMATION
  Report Type: 
  Country: None (occurrence: None)
  Receive Date: 20090402
  Receipt Date: 20071218
  Transmission Date: 20091009
  Serious: Yes (Hospitalization)
  Sender: FDA-Public Use
  Company Number: AE08-002

PATIENT
  Age: 47 Year
  Sex: Female

DRUGS (1)
  1. MIXTURE OF ALLERGENIC EXTRACTS - OFFICE PREPARED [Suspect]
     Indication: HYPERSENSITIVITY
     Dosage: SUBCUTANEOUS
     Route: 058
     Dates: start: 20071213

REACTIONS (2)
  - ANAPHYLACTIC REACTION [None]
  - HYPERSENSITIVITY [None]
